FAERS Safety Report 7363446-8 (Version None)
Quarter: 2011Q1

REPORT INFORMATION
  Report Type: 
  Country: None (occurrence: None)
  Receive Date: 20110321
  Receipt Date: 20110308
  Transmission Date: 20110831
  Serious: Yes (Hospitalization)
  Sender: FDA-Public Use
  Company Number: US-JNJFOC-20090200207

PATIENT
  Sex: Female
  Weight: 48.5 kg

DRUGS (4)
  1. HYDROCORTISONE [Concomitant]
  2. MESALAMINE [Concomitant]
     Route: 048
  3. REMICADE [Suspect]
  4. REMICADE [Suspect]
     Indication: INFLAMMATORY BOWEL DISEASE
     Dosage: TOTAL 9 DOSES

REACTIONS (1)
  - COLITIS ULCERATIVE [None]
